FAERS Safety Report 25926529 (Version 1)
Quarter: 2025Q4

REPORT INFORMATION
  Report Type: Spontaneous
  Country: US (occurrence: US)
  Receive Date: 20251015
  Receipt Date: 20251015
  Transmission Date: 20260117
  Serious: Yes (Other)
  Sender: pharmaAND
  Company Number: US-Pharmaand-2025001056

PATIENT
  Age: 44 Year
  Sex: Female

DRUGS (1)
  1. PEGASYS [Suspect]
     Active Substance: PEGINTERFERON ALFA-2A
     Indication: Chronic hepatitis C
     Dosage: DURATION: ABOUT 9 MONTHS

REACTIONS (6)
  - Psychotic disorder [Not Recovered/Not Resolved]
  - Seizure [Unknown]
  - Loss of consciousness [Recovering/Resolving]
  - Immune system disorder [Not Recovered/Not Resolved]
  - Mania [Not Recovered/Not Resolved]
  - Anxiety [Recovering/Resolving]
